FAERS Safety Report 10974268 (Version 2)
Quarter: 2015Q2

REPORT INFORMATION
  Report Type: Spontaneous
  Country: None (occurrence: US)
  Receive Date: 20150401
  Receipt Date: 20150506
  Transmission Date: 20150821
  Serious: No
  Sender: FDA-Public Use
  Company Number: US-EISAI MEDICAL RESEARCH-EC-2015-005304

PATIENT
  Age: 86 Year
  Sex: Male
  Weight: 79.3 kg

DRUGS (10)
  1. OCUVITE [Concomitant]
     Active Substance: VITAMINS
     Indication: PRODUCT USED FOR UNKNOWN INDICATION
     Dosage: 1
     Route: 048
  2. FISH OILS [Concomitant]
     Indication: EYE DISORDER
     Dosage: UNKNOWN
  3. FISH OILS [Concomitant]
     Indication: ARTHRITIS
  4. MULTIVITAMINS [Concomitant]
     Active Substance: VITAMINS
     Indication: EYE DISORDER
     Dosage: UNKNOWN
  5. MULTIVITAMINS [Concomitant]
     Active Substance: VITAMINS
     Indication: ARTHRITIS
  6. DONEPEZIL [Suspect]
     Active Substance: DONEPEZIL
     Indication: DEMENTIA ALZHEIMER^S TYPE
     Route: 048
     Dates: start: 20141029, end: 20150211
  7. OCUVITE [Concomitant]
     Active Substance: VITAMINS
     Indication: ARTHRITIS
  8. PRAVASTATIN [Concomitant]
     Active Substance: PRAVASTATIN\PRAVASTATIN SODIUM
     Indication: PRODUCT USED FOR UNKNOWN INDICATION
     Dosage: 40 MG
     Route: 048
  9. PRAVASTATIN [Concomitant]
     Active Substance: PRAVASTATIN\PRAVASTATIN SODIUM
     Indication: ARTHRITIS
  10. PRILOSEC [Concomitant]
     Active Substance: OMEPRAZOLE MAGNESIUM
     Indication: DYSPEPSIA
     Dosage: UNKNOWN

REACTIONS (1)
  - Diarrhoea [Recovered/Resolved]

NARRATIVE: CASE EVENT DATE: 20141029
